FAERS Safety Report 4356911-9 (Version None)
Quarter: 2004Q2

REPORT INFORMATION
  Report Type: 
  Country: None (occurrence: None)
  Receive Date: 20040507
  Receipt Date: 20040423
  Transmission Date: 20050107
  Serious: Yes (Hospitalization)
  Sender: FDA-Public Use
  Company Number: 236499

PATIENT
  Age: 52 Year
  Sex: Male
  Weight: 81.6 kg

DRUGS (8)
  1. NOVOLOG [Suspect]
     Indication: DIABETES MELLITUS INSULIN-DEPENDENT
     Dosage: 30 IU, QD, SUBCUTANEOUS
     Route: 058
     Dates: start: 20040312
  2. NOVOLOG [Suspect]
     Indication: DIABETES MELLITUS INSULIN-DEPENDENT
     Dosage: 70 IU, QD, SUBCUTANEOUS
     Route: 058
     Dates: end: 20040418
  3. HUMULIN L (INSULIN HUMAN ZINC SUSPENSION) [Concomitant]
  4. LISINOPRIL [Concomitant]
  5. HYDROCHLOROTHIAZIDE [Concomitant]
  6. ZOCOR [Concomitant]
  7. VANCOMYCIN [Concomitant]
  8. CIPROFLOXACIN [Concomitant]

REACTIONS (7)
  - BLOOD GLUCOSE INCREASED [None]
  - BLOOD PRESSURE INCREASED [None]
  - CONFUSIONAL STATE [None]
  - DRUG INTOLERANCE [None]
  - DYSPNOEA [None]
  - HEART RATE INCREASED [None]
  - SWELLING [None]
